FAERS Safety Report 8166772-8 (Version None)
Quarter: 2012Q1

REPORT INFORMATION
  Report Type: 
  Country: None (occurrence: None)
  Receive Date: 20120227
  Receipt Date: 20120217
  Transmission Date: 20120608
  Serious: Yes (Hospitalization, Other)
  Sender: FDA-Public Use
  Company Number: JP-ROCHE-1042442

PATIENT
  Sex: Male
  Weight: 35 kg

DRUGS (2)
  1. FLOMOX [Concomitant]
     Dosage: DOSAGE IS UNCERTAIN.
     Route: 065
     Dates: start: 20120213, end: 20120213
  2. TAMIFLU [Suspect]
     Indication: INFLUENZA
     Dosage: DOSAGE IS UNCERTAIN.
     Route: 048
     Dates: start: 20120213, end: 20120214

REACTIONS (1)
  - ABNORMAL BEHAVIOUR [None]
